FAERS Safety Report 12475603 (Version 3)
Quarter: 2016Q3

REPORT INFORMATION
  Report Type: Spontaneous
  Country: JP (occurrence: JP)
  Receive Date: 20160617
  Receipt Date: 20160804
  Transmission Date: 20161109
  Serious: Yes (Hospitalization, Other)
  Sender: FDA-Public Use
  Company Number: JP-009507513-1606JPN005356

PATIENT
  Age: 73 Year
  Sex: Male
  Weight: 66.5 kg

DRUGS (59)
  1. LYRICA [Concomitant]
     Active Substance: PREGABALIN
     Dosage: 75 MG, 1 DAY. DIVIDED DOSE FREQUENCY UNKNOWN
     Route: 048
     Dates: start: 20160510, end: 20160516
  2. AMOBANTES [Concomitant]
     Dosage: 7.5 MG, AS NEEDED
     Route: 048
     Dates: start: 20160518, end: 20160518
  3. NAUZELIN [Concomitant]
     Active Substance: DOMPERIDONE
     Dosage: 5 DF, AS NEEDED
     Route: 054
     Dates: start: 20160517, end: 20160517
  4. LACTEC [Concomitant]
     Active Substance: CALCIUM CHLORIDE ANHYDROUS\POTASSIUM CHLORIDE\SODIUM CHLORIDE\SODIUM LACTATE
     Dosage: 500 ML, 1 DAY. DIVIDED DOSE FREQUENCY UNKNOWN
     Route: 051
     Dates: start: 20160521, end: 20160521
  5. NEUROTROPIN [Concomitant]
     Active Substance: NEUROTROPIN
     Dosage: 1 DF, 1 DAY. DIVIDED DOSE FREQUENCY UNKNOWN
     Route: 051
     Dates: start: 20160510, end: 20160510
  6. ATROPINE. [Concomitant]
     Active Substance: ATROPINE
     Dosage: 0.5 DF, 1 DAY DIVIDED DOSE FREQUENCY UNKNOWN
     Route: 051
     Dates: start: 20160523, end: 20160523
  7. LANZOPRAZOL [Suspect]
     Active Substance: LANSOPRAZOLE
     Dosage: 15 MG, 1 DAY. DIVIDED DOSE FREQUENCY UNKNOWN
     Route: 048
     Dates: start: 20160429, end: 20160524
  8. WARFARIN [Concomitant]
     Active Substance: WARFARIN
     Dosage: 1.5 MG, 1 DAY. DIVIDED DOSE FREQUENCY UNKNOWN
     Route: 048
     Dates: start: 20160507, end: 20160523
  9. NIFELANTERN CR [Concomitant]
     Active Substance: NIFEDIPINE
     Dosage: 40 MG, 1 DAY. DIVIDED DOSE FREQUENCY UNKNOWN
     Route: 048
     Dates: start: 20160507, end: 20160523
  10. ELIETEN [Concomitant]
     Active Substance: METOCLOPRAMIDE
     Dosage: 1 DF, 1 DAY. DIVIDED DOSE FREQUENCY UNKNOWN
     Route: 051
     Dates: start: 20160517, end: 20160517
  11. VASOLAN [Concomitant]
     Active Substance: VERAPAMIL HYDROCHLORIDE
     Dosage: 1 DF, 1 DAY. DIVIDED DOSE FREQUENCY UNKNOWN
     Route: 051
     Dates: start: 20160517, end: 20160517
  12. NEUROTROPIN [Concomitant]
     Active Substance: NEUROTROPIN
     Dosage: 1 DF, 1 DAY. DIVIDED DOSE FREQUENCY UNKNOWN
     Route: 051
     Dates: start: 20160515, end: 20160515
  13. NEUROTROPIN [Concomitant]
     Active Substance: NEUROTROPIN
     Dosage: 1 DF, 1 DAY. DIVIDED DOSE FREQUENCY UNKNOWN
     Route: 051
     Dates: start: 20160517, end: 20160517
  14. JANUVIA [Suspect]
     Active Substance: SITAGLIPTIN PHOSPHATE
     Dosage: 12.5MG, 1 DAY, DIVIDED DOSE FREQUENCY UNKNOWN
     Route: 048
     Dates: start: 20160324, end: 20160423
  15. METLIGINE [Concomitant]
     Active Substance: MIDODRINE HYDROCHLORIDE
     Dosage: 2 MG, 1 DAY. DIVIDED DOSE FREQUENCY UNKNOWN
     Route: 048
     Dates: start: 20160427, end: 20160524
  16. NOVAMIN (PROCHLORPERAZINE MALEATE) [Concomitant]
     Active Substance: PROCHLORPERAZINE MALEATE
     Dosage: 15 MG, 1 DAY. DIVIDED DOSE FREQUENCY UNKNOWN
     Route: 048
     Dates: start: 20160518, end: 20160519
  17. BFLUID [Concomitant]
     Active Substance: AMINO ACIDS\DEXTROSE\ELECTROLYTES NOS\VITAMINS
     Dosage: 1000 ML, 1 DAY. DIVIDED DOSE FREQUENCY UNKNOWN
     Route: 051
     Dates: start: 20160523, end: 20160523
  18. LACTEC [Concomitant]
     Active Substance: CALCIUM CHLORIDE ANHYDROUS\POTASSIUM CHLORIDE\SODIUM CHLORIDE\SODIUM LACTATE
     Dosage: 500 ML, 1 DAY. DIVIDED DOSE FREQUENCY UNKNOWN
     Route: 051
     Dates: start: 20160516, end: 20160516
  19. LACTEC [Concomitant]
     Active Substance: CALCIUM CHLORIDE ANHYDROUS\POTASSIUM CHLORIDE\SODIUM CHLORIDE\SODIUM LACTATE
     Dosage: 2500 ML, 1 DAY. DIVIDED DOSE FREQUENCY UNKNOWN
     Route: 051
     Dates: start: 20160523, end: 20160523
  20. OMEPRAZOLE. [Concomitant]
     Active Substance: OMEPRAZOLE
     Dosage: 2 DF, 1 DAY. DIVIDED DOSE FREQUENCY UNKNOWN
     Route: 051
     Dates: start: 20160523, end: 20160523
  21. ELIETEN [Concomitant]
     Active Substance: METOCLOPRAMIDE
     Dosage: 2 DF, 1 DAY. DIVIDED DOSE FREQUENCY UNKNOWN
     Route: 051
     Dates: start: 20160514, end: 20160514
  22. ELIETEN [Concomitant]
     Active Substance: METOCLOPRAMIDE
     Dosage: 1 DF, 1 DAY. DIVIDED DOSE FREQUENCY UNKNOWN
     Route: 051
     Dates: start: 20160522, end: 20160522
  23. BUSCOPAN [Concomitant]
     Active Substance: BUTYLSCOPOLAMINE BROMIDE
     Dosage: 1 DF, 1 DAY. DIVIDED DOSE FREQUENCY UNKNOWN
     Route: 051
     Dates: start: 20160514, end: 20160514
  24. ATARAX [Concomitant]
     Active Substance: HYDROXYZINE\HYDROXYZINE HYDROCHLORIDE
     Dosage: 1 DF, 1 DAY. DIVIDED DOSE FREQUENCY UNKNOWN
     Route: 051
     Dates: start: 20160522, end: 20160522
  25. JANUVIA [Suspect]
     Active Substance: SITAGLIPTIN PHOSPHATE
     Dosage: DAILY DOSE UNKNOWN
     Route: 048
     Dates: start: 20160602, end: 20160610
  26. TAZOPIP [Suspect]
     Active Substance: PIPERACETAZINE\TAZOBACTAM
     Dosage: 1 DF, 1 DAY. DIVIDED DOSE FREQUENCY UNKNOWN
     Route: 042
     Dates: start: 20160523, end: 20160523
  27. TAZOPIP [Suspect]
     Active Substance: PIPERACETAZINE\TAZOBACTAM
     Dosage: 4 DF, 1 DAY. DIVIDED DOSE FREQUENCY UNKNOWN
     Route: 042
     Dates: start: 20160524, end: 20160524
  28. VASOLAN [Concomitant]
     Active Substance: VERAPAMIL HYDROCHLORIDE
     Dosage: 40 MG, 1 DAY. DIVIDED DOSE FREQUENCY UNKNOWN
     Route: 048
     Dates: start: 20160425, end: 20160523
  29. CALONAL [Concomitant]
     Active Substance: ACETAMINOPHEN
     Dosage: 2400MG, 1 DAY. DIVIDED DOSE FREQUENCY UNKNOWN
     Route: 048
     Dates: start: 20160525
  30. DEPAKENE [Concomitant]
     Active Substance: VALPROIC ACID
     Dosage: 400 MG, 1 DAY. DIVIDED DOSE FREQUENCY UNKNOWN
     Route: 048
     Dates: start: 20160426, end: 20160523
  31. ELIETEN [Concomitant]
     Active Substance: METOCLOPRAMIDE
     Dosage: 15 MG, 1 DAY. DIVIDED DOSE FREQUENCY UNKNOWN
     Route: 048
     Dates: start: 20160516, end: 20160518
  32. ATARAX [Concomitant]
     Active Substance: HYDROXYZINE\HYDROXYZINE HYDROCHLORIDE
     Dosage: 2 DF, 1 DAY. DIVIDED DOSE FREQUENCY UNKNOWN
     Route: 051
     Dates: start: 20160517, end: 20160517
  33. ATARAX [Concomitant]
     Active Substance: HYDROXYZINE\HYDROXYZINE HYDROCHLORIDE
     Dosage: 1 DF, 1 DAY. DIVIDED DOSE FREQUENCY UNKNOWN
     Route: 051
     Dates: start: 20160520, end: 20160520
  34. NEUROTROPIN [Concomitant]
     Active Substance: NEUROTROPIN
     Dosage: 2 DF, 1 DAY. DIVIDED DOSE FREQUENCY UNKNOWN
     Route: 051
     Dates: start: 20160522, end: 20160522
  35. JANUVIA [Suspect]
     Active Substance: SITAGLIPTIN PHOSPHATE
     Dosage: 50 MG, 1 DAY. DIVIDED DOSE FREQUENCY UNKNOWN
     Route: 048
     Dates: start: 20160502, end: 20160524
  36. VASOLAN [Concomitant]
     Active Substance: VERAPAMIL HYDROCHLORIDE
     Dosage: 20 MG, 1 DAY. DIVIDED DOSE FREQUENCY UNKNOWN
     Route: 048
     Dates: start: 20160527, end: 20160527
  37. WARFARIN [Concomitant]
     Active Substance: WARFARIN
     Dosage: 1.5 MG, 1 DAY. DIVIDED DOSE FREQUENCY UNKNOWN
     Route: 048
     Dates: start: 20160526
  38. INTRALIPOS [Concomitant]
     Active Substance: SOYBEAN OIL
     Dosage: 100 ML, 1 DAY. DIVIDED DOSE FREQUENCY UNKNOWN
     Route: 051
     Dates: start: 20160516, end: 20160516
  39. INTRALIPOS [Concomitant]
     Active Substance: SOYBEAN OIL
     Dosage: 100 ML, 1 DAY. DIVIDED DOSE FREQUENCY UNKNOWN
     Route: 051
     Dates: start: 20160520, end: 20160521
  40. ELIETEN [Concomitant]
     Active Substance: METOCLOPRAMIDE
     Dosage: 1 DF, 1 DAY. DIVIDED DOSE FREQUENCY UNKNOWN
     Route: 051
     Dates: start: 20160515, end: 20160515
  41. SERENACE [Concomitant]
     Active Substance: HALOPERIDOL
     Dosage: 1 DF, 1 DAY. DIVIDED DOSE FREQUENCY UNKNOWN
     Route: 051
     Dates: start: 20160523, end: 20160523
  42. CEFMETAZOLE SODIUM [Concomitant]
     Active Substance: CEFMETAZOLE SODIUM
     Dosage: 1.5 G, 1 DAY. DIVIDED DOSE FREQUENCY UNKNOWN
     Route: 051
     Dates: start: 20160523, end: 20160523
  43. NAUZELIN [Concomitant]
     Active Substance: DOMPERIDONE
     Dosage: 3 DF, AS NEEDED
     Route: 054
     Dates: start: 20160515, end: 20160515
  44. BESACOLIN [Concomitant]
     Active Substance: BETHANECHOL CHLORIDE
     Dosage: 45 MG, 1 DAY. DIVIDED DOSE FREQUENCY UNKNOWN. FORMULATION: POW
     Route: 048
     Dates: start: 20160503, end: 20160523
  45. UBRETID [Concomitant]
     Active Substance: DISTIGMINE BROMIDE
     Dosage: 5 MG, 1 DAY. DIVIDED DOSE FREQUENCY UKNOWN
     Route: 048
     Dates: start: 20160503, end: 20160517
  46. VASOLAN [Concomitant]
     Active Substance: VERAPAMIL HYDROCHLORIDE
     Dosage: 40 MG, 1 DAY. DIVIDED DOSE FREQUENCY UNKNOWN
     Route: 048
     Dates: start: 20160528
  47. NEUROTROPIN [Concomitant]
     Active Substance: NEUROTROPIN
     Dosage: TOTAL DAILY DOSE: 16(UNDER 1000UNITS) DIVIDED DOSE FREQUENCY UNKNOWN
     Route: 048
     Dates: start: 20160506, end: 20160523
  48. CALONAL [Concomitant]
     Active Substance: ACETAMINOPHEN
     Dosage: 2400MG, 1 DAY. DIVIDED DOSE FREQUENCY UNKNOWN
     Route: 048
     Dates: start: 20160518, end: 20160523
  49. BFLUID [Concomitant]
     Active Substance: AMINO ACIDS\DEXTROSE\ELECTROLYTES NOS\VITAMINS
     Dosage: 500 ML, 1 DAY. DIVIDED DOSE FREQUENCY UNKNOWN
     Route: 051
     Dates: start: 20160516, end: 20160516
  50. BFLUID [Concomitant]
     Active Substance: AMINO ACIDS\DEXTROSE\ELECTROLYTES NOS\VITAMINS
     Dosage: 500 ML, 1 DAY. DIVIDED DOSE FREQUENCY UNKNOWN
     Route: 051
     Dates: start: 20160521, end: 20160521
  51. ATARAX [Concomitant]
     Active Substance: HYDROXYZINE\HYDROXYZINE HYDROCHLORIDE
     Dosage: 2 DF, 1 DAY. DIVIDED DOSE FREQUENCY UNKNOWN
     Route: 051
     Dates: start: 20160523, end: 20160523
  52. HEPARIN SODIUM. [Concomitant]
     Active Substance: HEPARIN SODIUM
     Dosage: 1.5 DF, 1 DAY. DIVIDED DOSE FREQUENCY UNKNOWN
     Route: 051
     Dates: start: 20160523, end: 20160523
  53. NEUROTROPIN [Concomitant]
     Active Substance: NEUROTROPIN
     Dosage: 2 DF, 1 DAY. DIVIDED DOSE FREQUENCY UNKNOWN
     Route: 051
     Dates: start: 20160516, end: 20160516
  54. BFLUID [Concomitant]
     Active Substance: AMINO ACIDS\DEXTROSE\ELECTROLYTES NOS\VITAMINS
     Dosage: 1000 ML, 1 DAY. DIVIDED DOSE FREQUENCY UNKNOWN
     Route: 051
     Dates: start: 20160515, end: 20160515
  55. OTSUKA NORMAL SALINE [Concomitant]
     Dosage: 500 ML, 1 DAY. DIVIDED DOSE FREQUENCY UNKNOWN
     Route: 051
     Dates: start: 20160523, end: 20160523
  56. BUSCOPAN [Concomitant]
     Active Substance: BUTYLSCOPOLAMINE BROMIDE
     Dosage: 1 DF, 1 DAY. DIVIDED DOSE FREQUENCY UNKNOWN
     Route: 051
     Dates: start: 20160517, end: 20160517
  57. ATARAX [Concomitant]
     Active Substance: HYDROXYZINE\HYDROXYZINE HYDROCHLORIDE
     Dosage: 1 DF, 1 DAY. DIVIDED DOSE FREQUENCY UNKNOWN
     Route: 051
     Dates: start: 20160516, end: 20160516
  58. NAUZELIN [Concomitant]
     Active Substance: DOMPERIDONE
     Dosage: 10 DF, AS NEEDED
     Route: 054
     Dates: start: 20160519, end: 20160519
  59. POTASSIUM CHLORIDE. [Concomitant]
     Active Substance: POTASSIUM CHLORIDE
     Dosage: 1 DF, 1 DAY. DIVIDED DOSE FREQUENCY UNKNOWN
     Route: 051
     Dates: start: 20160523, end: 20160523

REACTIONS (3)
  - Product use issue [Unknown]
  - Pneumonia aspiration [Unknown]
  - Interstitial lung disease [Recovering/Resolving]

NARRATIVE: CASE EVENT DATE: 20160324
